FAERS Safety Report 9306437 (Version 2)
Quarter: 2013Q2

REPORT INFORMATION
  Report Type: Spontaneous
  Country: PR (occurrence: US)
  Receive Date: 20130523
  Receipt Date: 20130528
  Transmission Date: 20140414
  Serious: No
  Sender: FDA-Public Use
  Company Number: PR-009507513-1305USA011656

PATIENT
  Age: 51 Year
  Sex: Female

DRUGS (1)
  1. HYZAAR [Suspect]
     Indication: HYPERTENSION
     Dosage: 100 MG, QD
     Route: 048
     Dates: start: 2007

REACTIONS (4)
  - Blood pressure increased [Unknown]
  - Headache [Unknown]
  - Product odour abnormal [Unknown]
  - Product quality issue [Unknown]
